FAERS Safety Report 18274345 (Version 2)
Quarter: 2020Q3

REPORT INFORMATION
  Report Type: Spontaneous
  Country: FR (occurrence: FR)
  Receive Date: 20200916
  Receipt Date: 20200928
  Transmission Date: 20201103
  Serious: Yes (Hospitalization, Other)
  Sender: FDA-Public Use
  Company Number: FR-JNJFOC-20200912922

PATIENT
  Age: 82 Year
  Sex: Male
  Weight: 118 kg

DRUGS (9)
  1. LIPTRUZET [Concomitant]
     Active Substance: ATORVASTATIN CALCIUM\EZETIMIBE
  2. XARELTO [Suspect]
     Active Substance: RIVAROXABAN
     Indication: ATRIAL FIBRILLATION
     Dosage: 15 MG, QD
     Route: 048
     Dates: start: 2017
  3. EPLERENONE. [Concomitant]
     Active Substance: EPLERENONE
     Dosage: 25 MG, BID
  4. PARACETAMOL [Concomitant]
     Active Substance: ACETAMINOPHEN
     Dosage: 1 G, EVERY 6 HOURS AS NEEDED
  5. BISOPROLOL [Concomitant]
     Active Substance: BISOPROLOL
     Dosage: 1.25 MG, QD
  6. EZETIMIBE + SIMVASTATIN [Concomitant]
     Active Substance: EZETIMIBE\SIMVASTATIN
     Dosage: 50 MG, QD
  7. PERINDOPRIL [Concomitant]
     Active Substance: PERINDOPRIL
     Dosage: 10 MG, QD
  8. FUROSEMIDE. [Concomitant]
     Active Substance: FUROSEMIDE
     Dosage: 20 MG, QD
  9. PARIET [Concomitant]
     Active Substance: RABEPRAZOLE SODIUM
     Dosage: 20 MG, QD

REACTIONS (6)
  - Cognitive disorder [Unknown]
  - Cerebrovascular accident [Unknown]
  - Pneumonia aspiration [Unknown]
  - Aphasia [Unknown]
  - Subarachnoid haemorrhage [Unknown]
  - Diplegia [Unknown]

NARRATIVE: CASE EVENT DATE: 20200617
